FAERS Safety Report 7521231-8 (Version None)
Quarter: 2011Q2

REPORT INFORMATION
  Report Type: 
  Country: None (occurrence: None)
  Receive Date: 20110603
  Receipt Date: 20101213
  Transmission Date: 20111010
  Serious: Yes (Hospitalization)
  Sender: FDA-Public Use
  Company Number: DE-BAYER-201042319GPV

PATIENT
  Age: 71 Year
  Sex: Male
  Weight: 76 kg

DRUGS (1)
  1. NEXAVAR [Suspect]
     Indication: HEPATIC NEOPLASM MALIGNANT
     Dosage: 400 MG, BID
     Route: 048
     Dates: start: 20100415, end: 20101103

REACTIONS (8)
  - DIARRHOEA [None]
  - PYREXIA [None]
  - FALL [None]
  - MALAISE [None]
  - DELIRIUM [None]
  - DIZZINESS [None]
  - PNEUMONIA [None]
  - ESCHERICHIA URINARY TRACT INFECTION [None]
